FAERS Safety Report 12123932 (Version 1)
Quarter: 2016Q1

REPORT INFORMATION
  Report Type: Spontaneous
  Country: US (occurrence: None)
  Receive Date: 20160226
  Receipt Date: 20160226
  Transmission Date: 20160526
  Serious: Yes (Disabling)
  Sender: FDA-Public Use
  Company Number: None

PATIENT
  Age: 61 Year
  Sex: Male
  Weight: 129.28 kg

DRUGS (15)
  1. LIDOCAINE. [Suspect]
     Active Substance: LIDOCAINE
     Indication: BACK PAIN
     Dosage: 1-3 PATCHES EVERY 12 HOURS FOR ONCE DAILY APPLIED AS MEDICATED PATCH TO SKIN
  2. LOSARTAN. [Concomitant]
     Active Substance: LOSARTAN
  3. LORAZEPAM. [Concomitant]
     Active Substance: LORAZEPAM
  4. LYRICA [Concomitant]
     Active Substance: PREGABALIN
  5. CRESTOR [Concomitant]
     Active Substance: ROSUVASTATIN CALCIUM
  6. METOPROLOL. [Concomitant]
     Active Substance: METOPROLOL
  7. METFORMIN [Concomitant]
     Active Substance: METFORMIN HYDROCHLORIDE
  8. GABAPENTIN. [Concomitant]
     Active Substance: GABAPENTIN
  9. IBUPROFEN. [Concomitant]
     Active Substance: IBUPROFEN
  10. ALFUZOSIN ER 10MG [Concomitant]
     Active Substance: ALFUZOSIN
  11. OXYCODONE [Concomitant]
     Active Substance: OXYCODONE
  12. FINASTERIDE. [Concomitant]
     Active Substance: FINASTERIDE
  13. PREVACID [Concomitant]
     Active Substance: LANSOPRAZOLE
  14. NITRO [Concomitant]
     Active Substance: NITROGLYCERIN
  15. TESTOSTERONE. [Concomitant]
     Active Substance: TESTOSTERONE

REACTIONS (3)
  - Product substitution issue [None]
  - Drug effect decreased [None]
  - Product adhesion issue [None]

NARRATIVE: CASE EVENT DATE: 20160211
